FAERS Safety Report 8596189-3 (Version None)
Quarter: 2012Q3

REPORT INFORMATION
  Report Type: 
  Country: None (occurrence: None)
  Receive Date: 20120815
  Receipt Date: 20120810
  Transmission Date: 20120928
  Serious: No
  Sender: FDA-Public Use
  Company Number: AR-GLAXOSMITHKLINE-A0989434A

PATIENT
  Age: 35 Year
  Sex: Female

DRUGS (4)
  1. ACITRETIN [Suspect]
     Indication: PSORIASIS
     Dosage: 25MG TWICE PER DAY
     Route: 048
     Dates: end: 20120731
  2. AMOXICILLIN [Suspect]
     Indication: PHARYNGITIS
  3. ORAL CONTRACEPTIVE [Concomitant]
     Indication: CONTRACEPTION
     Route: 048
  4. NSAIDS [Concomitant]

REACTIONS (1)
  - MATERNAL EXPOSURE DURING PREGNANCY [None]
